FAERS Safety Report 7417104-1 (Version None)
Quarter: 2011Q2

REPORT INFORMATION
  Report Type: 
  Country: None (occurrence: None)
  Receive Date: 20110415
  Receipt Date: 20110406
  Transmission Date: 20111010
  Serious: Yes (Other)
  Sender: FDA-Public Use
  Company Number: JP-B.I. PHARMACEUTICALS,INC./RIDGEFIELD-2011-DE-02334GD

PATIENT
  Sex: Female

DRUGS (2)
  1. MELOXICAM [Suspect]
     Indication: MUSCULOSKELETAL PAIN
  2. ETHYL ICOSAPENTATE [Suspect]
     Indication: MUSCULOSKELETAL PAIN
     Route: 048

REACTIONS (1)
  - ABORTION SPONTANEOUS [None]
